FAERS Safety Report 6443611-4 (Version None)
Quarter: 2009Q4

REPORT INFORMATION
  Report Type: 
  Country: None (occurrence: None)
  Receive Date: 20091117
  Receipt Date: 20091104
  Transmission Date: 20100525
  Serious: Yes (Death, Hospitalization)
  Sender: FDA-Public Use
  Company Number: TW-PFIZER INC-2009281949

PATIENT
  Age: 71 Year
  Sex: Male
  Weight: 67 kg

DRUGS (9)
  1. *SORAFENIB TOSILATE [Suspect]
     Indication: METASTATIC RENAL CELL CARCINOMA
     Dosage: 400 MG, 1X/DAY
     Route: 048
     Dates: start: 20090909, end: 20091011
  2. PREDNISOLONE [Suspect]
     Indication: GOUTY ARTHRITIS
     Dosage: 5 MG, BID PRN
     Route: 048
     Dates: start: 20091005, end: 20091009
  3. GLIBENCLAMIDE [Concomitant]
     Indication: DIABETES MELLITUS
     Dosage: UNK
     Dates: start: 19980101
  4. METFORMIN [Concomitant]
     Indication: DIABETES MELLITUS
     Dosage: UNK
     Dates: start: 19980101
  5. ACETYLSALICYLIC ACID [Concomitant]
     Indication: ANGINA PECTORIS
     Dosage: UNK
     Dates: start: 19980101
  6. NYSTATIN [Concomitant]
     Indication: MUCOSAL INFLAMMATION
     Dosage: UNK
     Dates: start: 20090921
  7. COLCHICINE [Concomitant]
     Indication: GOUTY ARTHRITIS
     Dosage: UNK
     Dates: start: 20091005
  8. FOLIC ACID [Concomitant]
     Indication: MEDICAL DIET
     Dosage: UNK
     Dates: start: 20091005
  9. CYPROHEPTADINE [Concomitant]
     Indication: RASH
     Dosage: UNK
     Dates: start: 20091005

REACTIONS (1)
  - DUODENAL ULCER HAEMORRHAGE [None]
